FAERS Safety Report 12438108 (Version 6)
Quarter: 2016Q4

REPORT INFORMATION
  Report Type: Spontaneous
  Country: BR (occurrence: BR)
  Receive Date: 20160606
  Receipt Date: 20161123
  Transmission Date: 20170207
  Serious: Yes (Life-Threatening, Hospitalization, Disabling, Other)
  Sender: FDA-Public Use
  Company Number: BR-ELI_LILLY_AND_COMPANY-BR201606000150

PATIENT
  Age: 22 Year
  Sex: Female
  Weight: 33.5 kg

DRUGS (5)
  1. HIDANTAL [Suspect]
     Active Substance: PHENYTOIN SODIUM
     Indication: SEIZURE
     Dosage: UNK, EVERY 8 HRS
     Route: 065
  2. VANCOMICINA [Concomitant]
     Active Substance: VANCOMYCIN
     Indication: PERITONITIS
     Dosage: UNK, UNKNOWN
     Route: 065
  3. LANTUS [Concomitant]
     Active Substance: INSULIN GLARGINE
     Dosage: UNK, UNKNOWN
     Route: 065
  4. CLOPIDOGREL [Suspect]
     Active Substance: CLOPIDOGREL BISULFATE
     Indication: PRODUCT USED FOR UNKNOWN INDICATION
     Dosage: UNK, UNKNOWN
     Route: 065
  5. HUMALOG [Suspect]
     Active Substance: INSULIN LISPRO
     Indication: TYPE 1 DIABETES MELLITUS
     Dosage: UNK UNK, OTHER
     Route: 058
     Dates: start: 2001

REACTIONS (30)
  - Pulmonary oedema [Unknown]
  - Peritonitis [Unknown]
  - Renal disorder [Unknown]
  - Blood glucose fluctuation [Unknown]
  - Road traffic accident [Unknown]
  - Cerebrovascular accident [Unknown]
  - Procedural complication [Unknown]
  - Myocardial infarction [Unknown]
  - Cataract [Unknown]
  - Diabetic ketoacidosis [Unknown]
  - Renal failure [Unknown]
  - Coma [Recovered/Resolved]
  - Gastritis [Unknown]
  - Haematemesis [Unknown]
  - Hypoglycaemia [Unknown]
  - Cardiac arrest [Recovered/Resolved]
  - Cardiac arrest [Recovered/Resolved]
  - Femur fracture [Unknown]
  - Traumatic renal injury [Unknown]
  - Incorrect dose administered [Unknown]
  - Blindness unilateral [Unknown]
  - Ischaemic stroke [Unknown]
  - Seizure [Unknown]
  - Blood potassium increased [Unknown]
  - Hypoglycaemic seizure [Unknown]
  - Hypoacusis [Unknown]
  - Hemiparesis [Unknown]
  - Retinal detachment [Unknown]
  - Drug-induced liver injury [Unknown]
  - Diabetic metabolic decompensation [Unknown]

NARRATIVE: CASE EVENT DATE: 2011
